FAERS Safety Report 17078687 (Version 2)
Quarter: 2025Q4

REPORT INFORMATION
  Report Type: Spontaneous
  Country: EU (occurrence: EU)
  Receive Date: 20191127
  Receipt Date: 20251212
  Transmission Date: 20260118
  Serious: Yes (Other)
  Sender: AUROBINDO
  Company Number: EU-SANOFI-AVENTIS-2010SA067197

PATIENT
  Age: 89 Year
  Sex: Female

DRUGS (1)
  1. ZOLPIDEM [Suspect]
     Active Substance: ZOLPIDEM TARTRATE
     Indication: Insomnia
     Dosage: 20 MILLIGRAM, ONCE A DAY (20 MG,HS)

REACTIONS (8)
  - Thermal burn [Unknown]
  - Anorexia nervosa [Recovered/Resolved]
  - Bulimia nervosa [Unknown]
  - Abnormal sleep-related event [Recovered/Resolved]
  - Sleep-related eating disorder [Recovered/Resolved]
  - Amnesia [Unknown]
  - Weight increased [Recovered/Resolved]
  - Overdose [Recovered/Resolved]
